FAERS Safety Report 9095591 (Version 2)
Quarter: 2013Q1

REPORT INFORMATION
  Report Type: Spontaneous
  Country: BR (occurrence: BR)
  Receive Date: 20130220
  Receipt Date: 20130227
  Transmission Date: 20140127
  Serious: Yes (Life-Threatening, Hospitalization, Other)
  Sender: FDA-Public Use
  Company Number: PHHY2013BR015203

PATIENT
  Age: 66 Year
  Sex: Female

DRUGS (8)
  1. FORASEQ [Suspect]
     Indication: ASTHMA
     Dosage: 1 INHALATION, QD
  2. FORASEQ [Suspect]
     Dosage: 2 INHALATION, QD
  3. PLAVIX [Suspect]
     Indication: NERVOUS SYSTEM DISORDER
     Dosage: 75 MG, QD
  4. NEXIAM [Suspect]
     Indication: GASTRIC ULCER
     Dosage: 1 DF, PRN
  5. RIVOTRIL [Concomitant]
     Indication: ASTHMA
     Dosage: HALF DF IN MORNING NAD AT NIGHT
  6. FRONTAL [Concomitant]
     Indication: DIZZINESS
     Dosage: HALF DF IN MORNING NAD AT NIGHT
  7. FRONTAL [Concomitant]
     Indication: ANXIETY
  8. BENICAR [Concomitant]
     Indication: HYPERTENSION
     Dosage: 1 DF, QD

REACTIONS (13)
  - Feeling abnormal [Recovered/Resolved]
  - Asthma [Recovered/Resolved]
  - Dyspnoea [Not Recovered/Not Resolved]
  - Wheezing [Not Recovered/Not Resolved]
  - Cough [Not Recovered/Not Resolved]
  - Bronchopneumonia [Recovered/Resolved]
  - Oral pustule [Recovered/Resolved]
  - Urinary tract infection [Recovered/Resolved]
  - Tooth loss [Unknown]
  - Oral candidiasis [Not Recovered/Not Resolved]
  - Ear pain [Not Recovered/Not Resolved]
  - Abdominal distension [Unknown]
  - Throat irritation [Not Recovered/Not Resolved]
